FAERS Safety Report 9237120 (Version 1)
Quarter: 2013Q2

REPORT INFORMATION
  Report Type: Spontaneous
  Country: GB (occurrence: GB)
  Receive Date: 20130417
  Receipt Date: 20130417
  Transmission Date: 20140414
  Serious: Yes (Other)
  Sender: FDA-Public Use
  Company Number: GB-TEVA-397696ISR

PATIENT
  Age: 66 Year
  Sex: Female
  Weight: 48.5 kg

DRUGS (3)
  1. CITALOPRAM [Suspect]
     Indication: DEPRESSION
     Route: 048
     Dates: start: 20110426, end: 20130315
  2. CALCICHEW D3 [Concomitant]
     Indication: OSTEOPOROSIS
     Dosage: 2 DOSAGE FORMS DAILY;
     Route: 048
     Dates: start: 20070524
  3. RISEDRONATE [Concomitant]
     Indication: OSTEOPOROSIS
     Route: 048
     Dates: start: 20070524

REACTIONS (3)
  - Oropharyngeal pain [Recovered/Resolved]
  - Lip swelling [Recovered/Resolved]
  - Ear pain [Recovered/Resolved]
